FAERS Safety Report 8068239-4 (Version None)
Quarter: 2012Q1

REPORT INFORMATION
  Report Type: 
  Country: None (occurrence: None)
  Receive Date: 20120124
  Receipt Date: 20110930
  Transmission Date: 20120608
  Serious: No
  Sender: FDA-Public Use
  Company Number: US-AMGEN-USASP2011050733

PATIENT
  Age: 70 Year
  Sex: Female

DRUGS (7)
  1. SIMVASTATIN [Concomitant]
  2. ADVAIR DISKUS 100/50 [Concomitant]
  3. PROAIR HFA [Concomitant]
  4. DILTIAZEM [Concomitant]
  5. PROLIA [Suspect]
     Indication: OSTEOPOROSIS POSTMENOPAUSAL
     Dosage: 60 MG, Q6MO
     Dates: start: 20110831
  6. XANAX [Concomitant]
  7. CITALOPRAM HYDROBROMIDE [Concomitant]

REACTIONS (3)
  - ABDOMINAL PAIN LOWER [None]
  - MYALGIA [None]
  - DYSURIA [None]
